FAERS Safety Report 24190331 (Version 1)
Quarter: 2024Q3

REPORT INFORMATION
  Report Type: Spontaneous
  Country: US (occurrence: None)
  Receive Date: 20240807
  Receipt Date: 20240807
  Transmission Date: 20241016
  Serious: No
  Sender: Public
  Company Number: None

PATIENT
  Age: 45 Year
  Sex: Female
  Weight: 119.25 kg

DRUGS (1)
  1. ZEPBOUND [Suspect]
     Active Substance: TIRZEPATIDE

REACTIONS (5)
  - Abdominal pain [None]
  - Pain [None]
  - Back pain [None]
  - Heart rate increased [None]
  - Hyperhidrosis [None]

NARRATIVE: CASE EVENT DATE: 20240807
